FAERS Safety Report 9403704 (Version 1)
Quarter: 2013Q3

REPORT INFORMATION
  Report Type: Spontaneous
  Country: US (occurrence: US)
  Receive Date: 20130717
  Receipt Date: 20130717
  Transmission Date: 20140515
  Serious: Yes (Other)
  Sender: FDA-Public Use
  Company Number: US-BRISTOL-MYERS SQUIBB COMPANY-19094580

PATIENT
  Age: 57 Year
  Sex: Female
  Weight: 68.03 kg

DRUGS (7)
  1. ABILIFY [Suspect]
     Indication: BIPOLAR DISORDER
  2. ABILIFY [Suspect]
     Indication: DEPRESSION
  3. ALPRAZOLAM [Concomitant]
  4. LAMOTRIGINE [Concomitant]
  5. PRISTIQ [Concomitant]
  6. PANTOPRAZOLE [Concomitant]
  7. ESTROGEN PATCH [Concomitant]
     Dosage: BIBELLE-DOT 0.05 MG PATCH

REACTIONS (1)
  - Age-related macular degeneration [Unknown]
